FAERS Safety Report 4278962-5 (Version None)
Quarter: 2004Q1

REPORT INFORMATION
  Report Type: 
  Country: None (occurrence: None)
  Receive Date: 20040126
  Receipt Date: 20040115
  Transmission Date: 20041129
  Serious: Yes (Disabling)
  Sender: FDA-Public Use
  Company Number: US-ROCHE-356278

PATIENT
  Sex: Female

DRUGS (1)
  1. ACCUTANE [Suspect]
     Indication: DRUG USE FOR UNKNOWN INDICATION
     Route: 048

REACTIONS (5)
  - AUTOIMMUNE DISORDER [None]
  - INFLAMMATORY BOWEL DISEASE [None]
  - MULTI-ORGAN DISORDER [None]
  - NERVOUS SYSTEM DISORDER [None]
  - SYSTEMIC LUPUS ERYTHEMATOSUS [None]
